FAERS Safety Report 10433754 (Version 10)
Quarter: 2018Q4

REPORT INFORMATION
  Report Type: Report from Study
  Country: US (occurrence: US)
  Receive Date: 20140905
  Receipt Date: 20181217
  Transmission Date: 20190204
  Serious: Yes (Other)
  Sender: FDA-Public Use
  Company Number: US-SA-2014SA101787

PATIENT
  Age: 50 Year
  Sex: Female

DRUGS (8)
  1. TERIFLUNOMIDE. [Suspect]
     Active Substance: TERIFLUNOMIDE
     Dosage: 7 MG,QD
     Route: 048
  2. CYANOCOBALAMIN. [Concomitant]
     Active Substance: CYANOCOBALAMIN
     Indication: VITAMIN B12 DEFICIENCY
     Dosage: FORM: PILLS
  3. TERIFLUNOMIDE. [Suspect]
     Active Substance: TERIFLUNOMIDE
     Dosage: 14 MG, QD
     Route: 048
     Dates: start: 20140618, end: 20150901
  4. ADDERALL [Suspect]
     Active Substance: AMPHETAMINE ASPARTATE\AMPHETAMINE SULFATE\DEXTROAMPHETAMINE SACCHARATE\DEXTROAMPHETAMINE SULFATE
     Indication: ASTHENIA
     Dosage: UNK UNK,UNK
     Route: 065
  5. TYSABRI [Suspect]
     Active Substance: NATALIZUMAB
     Dosage: UNK
     Dates: start: 201705
  6. PROVIGIL [MODAFINIL] [Concomitant]
     Dosage: UNK UNK,UNK
  7. TERIFLUNOMIDE. [Suspect]
     Active Substance: TERIFLUNOMIDE
     Indication: MULTIPLE SCLEROSIS
     Dosage: 7 MG,QD
     Route: 048
     Dates: start: 20140517, end: 20140617
  8. KLONOPIN [Concomitant]
     Active Substance: CLONAZEPAM
     Dosage: UNK

REACTIONS (25)
  - Condition aggravated [Unknown]
  - Abdominal discomfort [Unknown]
  - Alopecia [Unknown]
  - Feeding disorder [Unknown]
  - Speech disorder [Unknown]
  - Bone pain [Unknown]
  - Condition aggravated [Recovering/Resolving]
  - Optic neuritis [Unknown]
  - Dyspnoea [Unknown]
  - Chest pain [Unknown]
  - Thyroid disorder [Unknown]
  - Affect lability [Unknown]
  - Fatigue [Unknown]
  - Adrenal disorder [Recovering/Resolving]
  - Visual impairment [Unknown]
  - Weight decreased [Not Recovered/Not Resolved]
  - Alopecia [Recovering/Resolving]
  - Asthenia [Unknown]
  - Lactose intolerance [Unknown]
  - Vision blurred [Unknown]
  - Multiple sclerosis relapse [Not Recovered/Not Resolved]
  - Mobility decreased [Unknown]
  - Heart rate increased [Unknown]
  - Memory impairment [Unknown]
  - Product dose omission [Unknown]

NARRATIVE: CASE EVENT DATE: 2014
